FAERS Safety Report 5804427-2 (Version None)
Quarter: 2008Q3

REPORT INFORMATION
  Report Type: 
  Country: None (occurrence: None)
  Receive Date: 20080702
  Receipt Date: 20070621
  Transmission Date: 20090109
  Serious: Yes (Other)
  Sender: FDA-Public Use
  Company Number: HQWYE775925JUN07

PATIENT
  Age: 44 Year
  Sex: Female
  Weight: 68.1 kg

DRUGS (2)
  1. ADVIL [Suspect]
     Indication: PAIN
     Dosage: 2 TABLET 1X PER 1 DAY, ORAL
     Route: 048
     Dates: start: 20050101, end: 20050101
  2. ADVIL [Suspect]
     Indication: HEADACHE
     Dosage: 2 CAPSULE 1X PER 1 DAY, ORAL
     Route: 048
     Dates: start: 20070617, end: 20070617

REACTIONS (2)
  - CHEST DISCOMFORT [None]
  - GENERALISED ERYTHEMA [None]
